FAERS Safety Report 6329476-X (Version None)
Quarter: 2009Q3

REPORT INFORMATION
  Report Type: 
  Country: None (occurrence: None)
  Receive Date: 20090826
  Receipt Date: 20090817
  Transmission Date: 20100115
  Serious: Yes (Hospitalization, Other)
  Sender: FDA-Public Use
  Company Number: US-ELI_LILLY_AND_COMPANY-US200908003555

PATIENT
  Sex: Female
  Weight: 84.354 kg

DRUGS (10)
  1. BYETTA [Suspect]
     Indication: TYPE 2 DIABETES MELLITUS
     Dosage: 5 UG, 2/D
     Route: 058
     Dates: start: 20070101, end: 20080101
  2. BYETTA [Suspect]
     Dosage: 10 UG, 2/D
     Route: 058
     Dates: start: 20080101, end: 20090601
  3. BYETTA [Suspect]
     Dosage: 10 UG, DAILY (1/D)
     Route: 058
     Dates: start: 20090601
  4. METFORMIN HCL [Concomitant]
     Indication: TYPE 2 DIABETES MELLITUS
     Dosage: 1000 MG, 2/D
     Route: 048
     Dates: end: 20090601
  5. METFORMIN HCL [Concomitant]
     Dosage: 1500 MG, DAILY (1/D)
     Dates: start: 20090601
  6. ACTOS [Concomitant]
     Indication: TYPE 2 DIABETES MELLITUS
     Dosage: 45 MG, DAILY (1/D)
     Route: 048
  7. GLYBURIDE [Concomitant]
     Indication: TYPE 2 DIABETES MELLITUS
     Dosage: 5 MG, 3/D
     Route: 048
     Dates: end: 20090601
  8. GLYBURIDE [Concomitant]
     Dosage: 5 MG, DAILY (1/D)
     Route: 048
     Dates: start: 20090601
  9. NEURONTIN [Concomitant]
     Indication: DIABETIC NEUROPATHY
     Dosage: 3200 MG, DAILY (1/D)
     Route: 048
  10. SYNTHROID [Concomitant]
     Indication: HYPOTHYROIDISM
     Dosage: 0.137 UG, DAILY (1/D)
     Route: 048

REACTIONS (15)
  - ASTHENIA [None]
  - BLOOD GLUCOSE DECREASED [None]
  - BLOOD GLUCOSE INCREASED [None]
  - COMMUNICATION DISORDER [None]
  - DISORIENTATION [None]
  - DRUG INEFFECTIVE [None]
  - FALL [None]
  - FEELING ABNORMAL [None]
  - HYPOGLYCAEMIC SEIZURE [None]
  - MALAISE [None]
  - MEMORY IMPAIRMENT [None]
  - OFF LABEL USE [None]
  - STRESS [None]
  - TUNNEL VISION [None]
  - WEIGHT DECREASED [None]
